FAERS Safety Report 4296100-X (Version None)
Quarter: 2004Q1

REPORT INFORMATION
  Report Type: 
  Country: None (occurrence: None)
  Receive Date: 20040213
  Receipt Date: 20040213
  Transmission Date: 20041129
  Serious: Yes (Life-Threatening, Hospitalization)
  Sender: FDA-Public Use
  Company Number: None

PATIENT
  Age: 81 Year
  Sex: Female

DRUGS (2)
  1. GATIFLOXACIN [Suspect]
     Indication: PNEUMONIA
     Dosage: ORALLY
  2. GATIFLOXACIN [Suspect]
     Indication: URINARY TRACT INFECTION
     Dosage: ORALLY

REACTIONS (4)
  - DEPRESSION [None]
  - DIABETIC HYPEROSMOLAR COMA [None]
  - HYPERGLYCAEMIA [None]
  - LETHARGY [None]
